FAERS Safety Report 8911774 (Version 2)
Quarter: 2012Q4

REPORT INFORMATION
  Report Type: 
  Country: US (occurrence: US)
  Receive Date: 20121116
  Receipt Date: 20121228
  Transmission Date: 20130627
  Serious: Yes (Other)
  Sender: FDA-Public Use
  Company Number: US-PFIZER INC-2012285907

PATIENT
  Age: 54 Year
  Sex: Female
  Weight: 90.7 kg

DRUGS (2)
  1. EFFEXOR XR [Suspect]
     Indication: ANXIETY ATTACK
     Dosage: UNK
     Route: 048
     Dates: end: 201210
  2. METOPROLOL [Concomitant]
     Indication: BLOOD PRESSURE HIGH
     Dosage: 100 mg, 1x/day

REACTIONS (7)
  - Pneumonia [Unknown]
  - Atypical pneumonia [Unknown]
  - Psychotic disorder [Unknown]
  - Chronic obstructive pulmonary disease [Unknown]
  - Bronchitis chronic [Unknown]
  - Blood pressure increased [Unknown]
  - Nervousness [Unknown]
